FAERS Safety Report 24770387 (Version 1)
Quarter: 2024Q4

REPORT INFORMATION
  Report Type: Spontaneous
  Country: US (occurrence: US)
  Receive Date: 20241224
  Receipt Date: 20241224
  Transmission Date: 20250115
  Serious: No
  Sender: ABBVIE
  Company Number: US-ABBVIE-6059234

PATIENT
  Sex: Female

DRUGS (1)
  1. BOTOX COSMETIC [Suspect]
     Active Substance: ONABOTULINUMTOXINA
     Indication: Product used for unknown indication
     Dosage: TIME INTERVAL: AS NECESSARY
     Route: 065
     Dates: start: 20241126, end: 20241126

REACTIONS (1)
  - Injection site papule [Not Recovered/Not Resolved]

NARRATIVE: CASE EVENT DATE: 20240101
